FAERS Safety Report 5197519-5 (Version None)
Quarter: 2006Q4

REPORT INFORMATION
  Report Type: 
  Country: None (occurrence: None)
  Receive Date: 20060926
  Receipt Date: 20001013
  Transmission Date: 20070319
  Serious: Yes (Other)
  Sender: FDA-Public Use
  Company Number: PHEH2000US09489

PATIENT
  Sex: Male

DRUGS (8)
  1. VOLTAREN [Suspect]
     Indication: ARTHRITIS
     Dosage: ORAL
     Route: 048
     Dates: start: 19890101
  2. DILTIAZEM [Concomitant]
  3. LIPITOR [Concomitant]
  4. GEMFIBROZIL [Concomitant]
  5. ALLOPURINOL [Concomitant]
  6. CLARITIN [Concomitant]
  7. GUAIFENESIN [Concomitant]
  8. IMDUR [Concomitant]

REACTIONS (2)
  - ASTHENIA [None]
  - GASTROINTESTINAL ULCER [None]
